FAERS Safety Report 24779429 (Version 2)
Quarter: 2025Q1

REPORT INFORMATION
  Report Type: Spontaneous
  Country: DE (occurrence: DE)
  Receive Date: 20241226
  Receipt Date: 20250115
  Transmission Date: 20250409
  Serious: Yes (Death, Other)
  Sender: DR REDDYS
  Company Number: None

PATIENT
  Age: 72 Year
  Sex: Male

DRUGS (8)
  1. AZACITIDINE [Suspect]
     Active Substance: AZACITIDINE
     Indication: Acute myeloid leukaemia
  2. MITOXANTRONE [Suspect]
     Active Substance: MITOXANTRONE HYDROCHLORIDE
     Indication: Acute myeloid leukaemia
  3. CYTARABINE [Suspect]
     Active Substance: CYTARABINE
     Indication: Acute myeloid leukaemia
  4. VENETOCLAX [Suspect]
     Active Substance: VENETOCLAX
     Indication: Acute myeloid leukaemia
  5. VENETOCLAX [Suspect]
     Active Substance: VENETOCLAX
     Indication: Salvage therapy
  6. GLASDEGIB [Concomitant]
     Active Substance: GLASDEGIB
     Indication: Acute myeloid leukaemia
     Dosage: 100 MILLIGRAM, 28D CYCLE, MAINTENANCE THERAPY; THREE 28-DAYS CYCLE
  7. GLASDEGIB [Concomitant]
     Active Substance: GLASDEGIB
  8. CYTARABINE [Concomitant]
     Active Substance: CYTARABINE
     Indication: Acute myeloid leukaemia
     Dosage: UNK, BID, 1.0  G/M2 ON DAYS 1, 2, AND 3 OF CYCLE; TWO CYCLES OF CONSOLIDATION PHASES, SALVAGE THERAP
     Route: 042

REACTIONS (5)
  - Drug ineffective [Fatal]
  - Drug resistance [Fatal]
  - Acute myeloid leukaemia refractory [Fatal]
  - Chloroma [Unknown]
  - Disease progression [Unknown]
